FAERS Safety Report 18109437 (Version 3)
Quarter: 2020Q4

REPORT INFORMATION
  Report Type: Spontaneous
  Country: US (occurrence: US)
  Receive Date: 20200804
  Receipt Date: 20201008
  Transmission Date: 20210113
  Serious: Yes (Hospitalization, Other)
  Sender: FDA-Public Use
  Company Number: US-GILEAD-2020-0486792

PATIENT
  Age: 59 Year
  Sex: Female
  Weight: 49 kg

DRUGS (60)
  1. TRUVADA [Suspect]
     Active Substance: EMTRICITABINE\TENOFOVIR DISOPROXIL FUMARATE
     Indication: HIV INFECTION
     Dosage: UNK
     Route: 048
     Dates: start: 20050401, end: 20160914
  2. DESCOVY [Concomitant]
     Active Substance: EMTRICITABINE\TENOFOVIR ALAFENAMIDE FUMARATE
     Indication: HIV INFECTION
     Dosage: UNK
  3. EDURANT [Concomitant]
     Active Substance: RILPIVIRINE HYDROCHLORIDE
     Indication: HIV INFECTION
  4. BISACODYL. [Concomitant]
     Active Substance: BISACODYL
  5. DIPHENHYDRAMINE. [Concomitant]
     Active Substance: DIPHENHYDRAMINE
  6. INDINAVIR SULFATE [Concomitant]
     Active Substance: INDINAVIR SULFATE
     Indication: HIV INFECTION
  7. OMEPRAZOLE. [Concomitant]
     Active Substance: OMEPRAZOLE
     Indication: GASTROOESOPHAGEAL REFLUX DISEASE
  8. ONDASETRON [ONDANSETRON HYDROCHLORIDE] [Concomitant]
     Indication: NAUSEA
  9. RIFAMPIN. [Concomitant]
     Active Substance: RIFAMPIN
     Indication: BACTERIAL INFECTION
  10. TRAMADOLE [Concomitant]
     Active Substance: TRAMADOL HYDROCHLORIDE
     Indication: PAIN
  11. TRAZODONE [Concomitant]
     Active Substance: TRAZODONE HYDROCHLORIDE
     Indication: ANXIETY
     Dosage: UNK
  12. VENLAFAXINE [Concomitant]
     Active Substance: VENLAFAXINE HYDROCHLORIDE
     Indication: ASTHMA
  13. ASPIRIN (E.C.) [Concomitant]
     Active Substance: ASPIRIN
  14. NORVIR [Concomitant]
     Active Substance: RITONAVIR
  15. SUSTIVA [Concomitant]
     Active Substance: EFAVIRENZ
     Indication: HIV INFECTION
  16. PHENAZOPYRIDINE. [Concomitant]
     Active Substance: PHENAZOPYRIDINE
     Indication: URINARY TRACT INFLAMMATION
  17. BIKTARVY [Concomitant]
     Active Substance: BICTEGRAVIR SODIUM\EMTRICITABINE\TENOFOVIR ALAFENAMIDE FUMARATE
  18. VIDEX [Concomitant]
     Active Substance: DIDANOSINE
  19. AMOXICILLIN. [Concomitant]
     Active Substance: AMOXICILLIN
     Indication: BACTERIAL INFECTION
  20. FERROUS SULFATE. [Concomitant]
     Active Substance: FERROUS SULFATE
  21. LORATADINE. [Concomitant]
     Active Substance: LORATADINE
  22. CRIXIVAN [Concomitant]
     Active Substance: INDINAVIR SULFATE
     Indication: HIV INFECTION
  23. ACETAMINOPHENE [Concomitant]
     Active Substance: ACETAMINOPHEN
     Indication: PAIN
  24. ALBUTEROL HFA [Concomitant]
     Active Substance: ALBUTEROL SULFATE
     Indication: ASTHMA
  25. BACLOFEN. [Concomitant]
     Active Substance: BACLOFEN
     Indication: PAIN
  26. ESTRADIOL. [Concomitant]
     Active Substance: ESTRADIOL
  27. FISH OIL [Concomitant]
     Active Substance: FISH OIL
  28. FLAXSEED [Concomitant]
     Active Substance: FLAX SEED
  29. LEVOTHYROXINE. [Concomitant]
     Active Substance: LEVOTHYROXINE
  30. LORAZEPAM. [Concomitant]
     Active Substance: LORAZEPAM
     Indication: DEPRESSION
  31. METRONIDAZOLE. [Concomitant]
     Active Substance: METRONIDAZOLE
  32. NALOXONE [Concomitant]
     Active Substance: NALOXONE
  33. VIREAD [Suspect]
     Active Substance: TENOFOVIR DISOPROXIL FUMARATE
     Indication: HIV INFECTION
     Dosage: UNK
     Route: 048
     Dates: start: 20110401, end: 20200301
  34. CLONAZEPAM. [Concomitant]
     Active Substance: CLONAZEPAM
  35. DOCUSATE [Concomitant]
     Active Substance: DOCUSATE
  36. HYDROCODONE [Concomitant]
     Active Substance: HYDROCODONE
     Indication: PAIN
  37. LAMIVUDINE. [Concomitant]
     Active Substance: LAMIVUDINE
     Indication: HIV INFECTION
  38. WELLBUTRIN [Concomitant]
     Active Substance: BUPROPION HYDROCHLORIDE
     Indication: DEPRESSION
  39. EPIVIR [Concomitant]
     Active Substance: LAMIVUDINE
     Indication: HIV INFECTION
  40. REYATAZ [Concomitant]
     Active Substance: ATAZANAVIR SULFATE
     Indication: HIV INFECTION
  41. ZIAGEN [Concomitant]
     Active Substance: ABACAVIR SULFATE
  42. SERTRALINE [Concomitant]
     Active Substance: SERTRALINE HYDROCHLORIDE
     Indication: ANXIETY
  43. TIVICAY [Concomitant]
     Active Substance: DOLUTEGRAVIR SODIUM
  44. ALENDRONATE [Concomitant]
     Active Substance: ALENDRONATE SODIUM
     Indication: OSTEOPOROSIS
  45. CALCIUM CARBONATE. [Concomitant]
     Active Substance: CALCIUM CARBONATE
  46. CEPHALEXIN AMEL [Concomitant]
     Active Substance: CEPHALEXIN
  47. HYDROCHLOROTHIAZIDE. [Concomitant]
     Active Substance: HYDROCHLOROTHIAZIDE
     Indication: POLYURIA
  48. MEDROXYPROGESTERONE [Concomitant]
     Active Substance: MEDROXYPROGESTERONE
  49. MORPHINE SULF [Concomitant]
     Active Substance: MORPHINE SULFATE
     Indication: PAIN
  50. MULTI VITAMIN + MINERAL [Concomitant]
     Active Substance: MINERALS\VITAMINS
  51. RECLAST [Concomitant]
     Active Substance: ZOLEDRONIC ACID
     Indication: OSTEOPOROSIS
  52. LEXIVA [Concomitant]
     Active Substance: FOSAMPRENAVIR CALCIUM
     Indication: HIV INFECTION
  53. ASCORBIC ACID. [Concomitant]
     Active Substance: ASCORBIC ACID
  54. CHLORPHENIRAMINE MALEATE. [Concomitant]
     Active Substance: CHLORPHENIRAMINE MALEATE
  55. CHOLECALCIFEROL [Concomitant]
     Active Substance: CHOLECALCIFEROL
  56. CYCLOBENZAPRINE. [Concomitant]
     Active Substance: CYCLOBENZAPRINE
  57. GABAPENTIN. [Concomitant]
     Active Substance: GABAPENTIN
     Indication: PAIN
  58. IBUPROFEN. [Concomitant]
     Active Substance: IBUPROFEN
     Indication: PAIN
  59. METHOCARBAMOL. [Concomitant]
     Active Substance: METHOCARBAMOL
  60. RANITIDINE. [Concomitant]
     Active Substance: RANITIDINE
     Indication: GASTROOESOPHAGEAL REFLUX DISEASE

REACTIONS (14)
  - Anxiety [Not Recovered/Not Resolved]
  - Anhedonia [Not Recovered/Not Resolved]
  - Pain [Not Recovered/Not Resolved]
  - Glomerular filtration rate decreased [Not Recovered/Not Resolved]
  - Depression [Not Recovered/Not Resolved]
  - Multiple fractures [Recovered/Resolved]
  - Renal failure [Not Recovered/Not Resolved]
  - Osteopenia [Unknown]
  - Bone density decreased [Unknown]
  - Emotional distress [Not Recovered/Not Resolved]
  - Hand fracture [Recovered/Resolved]
  - Osteoporosis [Not Recovered/Not Resolved]
  - Blood creatinine increased [Not Recovered/Not Resolved]
  - Proteinuria [Not Recovered/Not Resolved]

NARRATIVE: CASE EVENT DATE: 20101014
